FAERS Safety Report 23122152 (Version 1)
Quarter: 2023Q4

REPORT INFORMATION
  Report Type: Spontaneous
  Country: US (occurrence: US)
  Receive Date: 20231030
  Receipt Date: 20231030
  Transmission Date: 20240109
  Serious: No
  Sender: FDA-Public Use
  Company Number: US-SUN PHARMACEUTICAL INDUSTRIES LTD-2022R1-355691

PATIENT
  Sex: Female

DRUGS (1)
  1. XELPROS [Suspect]
     Active Substance: LATANOPROST
     Indication: Glaucoma
     Dosage: UNK, OD AT NIGHT
     Route: 047
     Dates: start: 20220520, end: 20220831

REACTIONS (2)
  - Eye swelling [Unknown]
  - Vision blurred [Recovered/Resolved]
